FAERS Safety Report 8099270-0 (Version None)
Quarter: 2012Q1

REPORT INFORMATION
  Report Type: 
  Country: None (occurrence: None)
  Receive Date: 20120129
  Receipt Date: 20111028
  Transmission Date: 20120608
  Serious: No
  Sender: FDA-Public Use
  Company Number: US-ABBOTT-11P-163-0869382-00

PATIENT
  Age: 41 Year
  Sex: Female

DRUGS (3)
  1. COLAZAL [Concomitant]
     Indication: ANTIINFLAMMATORY THERAPY
  2. HUMIRA [Suspect]
     Indication: COLITIS ULCERATIVE
     Dates: start: 20111012
  3. PAXIL [Concomitant]
     Indication: ANXIETY

REACTIONS (3)
  - NAUSEA [None]
  - HEADACHE [None]
  - COUGH [None]
